FAERS Safety Report 5621987-5 (Version None)
Quarter: 2008Q1

REPORT INFORMATION
  Report Type: 
  Country: None (occurrence: None)
  Receive Date: 20080211
  Receipt Date: 20080205
  Transmission Date: 20080703
  Serious: Yes (Hospitalization)
  Sender: FDA-Public Use
  Company Number: D0055942A

PATIENT
  Age: 63 Year
  Sex: Male

DRUGS (6)
  1. AVANDAMET [Suspect]
     Indication: TYPE 2 DIABETES MELLITUS
     Dosage: 1004MG TWICE PER DAY
     Route: 048
     Dates: end: 20071220
  2. ALLOPURINOL [Concomitant]
     Indication: HYPERURICAEMIA
     Dosage: 150MG PER DAY
     Route: 048
     Dates: start: 20040311
  3. LANTUS [Concomitant]
     Indication: DIABETES MELLITUS
     Dosage: 20IU PER DAY
     Route: 058
     Dates: start: 20040311
  4. SIMVASTATIN [Concomitant]
     Indication: HYPERLIPIDAEMIA
     Dosage: 20MG PER DAY
     Route: 048
     Dates: start: 20040311
  5. METOPROLOL SUCCINATE [Concomitant]
     Indication: HYPERTENSION
     Dosage: 50MG TWICE PER DAY
     Route: 048
     Dates: start: 20040311
  6. ASPIRIN [Concomitant]
     Indication: CEREBROVASCULAR ACCIDENT
     Dosage: 100MG PER DAY
     Route: 048
     Dates: start: 20040311

REACTIONS (5)
  - ABDOMINAL SYMPTOM [None]
  - ENURESIS [None]
  - GRAND MAL CONVULSION [None]
  - LOSS OF CONSCIOUSNESS [None]
  - MALAISE [None]
